FAERS Safety Report 7419458-9 (Version None)
Quarter: 2011Q2

REPORT INFORMATION
  Report Type: 
  Country: None (occurrence: None)
  Receive Date: 20110413
  Receipt Date: 20110413
  Transmission Date: 20111010
  Serious: No
  Sender: FDA-Public Use
  Company Number: None

PATIENT
  Age: 41 Year
  Sex: Male
  Weight: 79.3795 kg

DRUGS (2)
  1. ZYPREXA [Suspect]
  2. HALDOL [Suspect]

REACTIONS (6)
  - LOW DENSITY LIPOPROTEIN INCREASED [None]
  - BLOOD CHOLESTEROL INCREASED [None]
  - BLOOD TRIGLYCERIDES INCREASED [None]
  - HEPATOMEGALY [None]
  - WHITE BLOOD CELL COUNT DECREASED [None]
  - HEPATIC STEATOSIS [None]
